FAERS Safety Report 16568562 (Version 4)
Quarter: 2019Q3

REPORT INFORMATION
  Report Type: Report from Study
  Country: CO (occurrence: CO)
  Receive Date: 20190712
  Receipt Date: 20190830
  Transmission Date: 20191004
  Serious: Yes (Death, Hospitalization)
  Sender: FDA-Public Use
  Company Number: PHHY2019CO159131

PATIENT
  Age: 30 Year
  Sex: Male
  Weight: 56 kg

DRUGS (3)
  1. REVOLADE [Suspect]
     Active Substance: ELTROMBOPAG
     Indication: IMMUNE THROMBOCYTOPENIC PURPURA
     Dosage: 50 MG, QD (3 MONTHS AGO)
     Route: 048
  2. REVOLADE [Suspect]
     Active Substance: ELTROMBOPAG
     Dosage: 50 MG, QD
     Route: 048
  3. INSULIN [Concomitant]
     Active Substance: INSULIN NOS
     Indication: DIABETES MELLITUS
     Dosage: UNK UNK, QD
     Route: 058

REACTIONS (8)
  - Syncope [Unknown]
  - Blood glucose decreased [Unknown]
  - Respiratory arrest [Unknown]
  - Platelet count decreased [Recovered/Resolved]
  - Death [Fatal]
  - General physical health deterioration [Unknown]
  - Pulmonary pain [Unknown]
  - Lung infection [Unknown]

NARRATIVE: CASE EVENT DATE: 20190707
